FAERS Safety Report 6683223-0 (Version None)
Quarter: 2010Q2

REPORT INFORMATION
  Report Type: 
  Country: None (occurrence: None)
  Receive Date: 20100415
  Receipt Date: 20100409
  Transmission Date: 20101027
  Serious: Yes (Other)
  Sender: FDA-Public Use
  Company Number: US-JNJCH-2010008774

PATIENT
  Age: 5 Year
  Sex: Male
  Weight: 27.2 kg

DRUGS (1)
  1. CHILDREN'S ZYRTEC ALLERGY [Suspect]
     Indication: EYE SWELLING
     Dosage: TEXT:ONE TEASPOON ONCE
     Route: 048
     Dates: start: 20100405, end: 20100405

REACTIONS (6)
  - CONDITION AGGRAVATED [None]
  - EYE INFECTION [None]
  - EYE SWELLING [None]
  - OFF LABEL USE [None]
  - PRODUCT QUALITY ISSUE [None]
  - PRODUCT TAMPERING [None]
